FAERS Safety Report 9894622 (Version 1)
Quarter: 2014Q1

REPORT INFORMATION
  Report Type: Report from Study
  Country: CA (occurrence: CA)
  Receive Date: 20140213
  Receipt Date: 20140213
  Transmission Date: 20141002
  Serious: Yes (Hospitalization, Other)
  Sender: FDA-Public Use
  Company Number: CA-ABBVIE-14P-028-1200410-00

PATIENT
  Sex: Female
  Weight: 51.76 kg

DRUGS (1)
  1. HUMIRA [Suspect]
     Indication: COLITIS ULCERATIVE
     Route: 058
     Dates: start: 20121107, end: 20130215

REACTIONS (7)
  - Malaise [Unknown]
  - Weight decreased [Unknown]
  - Oral herpes [Unknown]
  - Chest discomfort [Unknown]
  - Dyspnoea [Unknown]
  - Influenza [Unknown]
  - Rectal haemorrhage [Unknown]
